FAERS Safety Report 21068694 (Version 3)
Quarter: 2022Q3

REPORT INFORMATION
  Report Type: Spontaneous
  Country: CA (occurrence: None)
  Receive Date: 20220712
  Receipt Date: 20220803
  Transmission Date: 20221027
  Serious: Yes (Other)
  Sender: FDA-Public Use
  Company Number: CA-PFIZER INC-202200935352

PATIENT
  Age: 70 Year
  Sex: Female

DRUGS (4)
  1. METHOTREXATE [Suspect]
     Active Substance: METHOTREXATE
     Indication: Rheumatoid arthritis
     Route: 065
     Dates: start: 20120730, end: 20220705
  2. SULFASALAZINE [Concomitant]
     Active Substance: SULFASALAZINE
     Indication: Rheumatoid arthritis
     Route: 048
     Dates: start: 20090310, end: 2018
  3. ETANERCEPT [Concomitant]
     Active Substance: ETANERCEPT
     Indication: Rheumatoid arthritis
     Dosage: DOSAGE NOT AVAILABLE
     Route: 065
     Dates: start: 20180530, end: 20220705
  4. PLAQUENIL [Concomitant]
     Active Substance: HYDROXYCHLOROQUINE SULFATE
     Route: 048
     Dates: start: 20121120, end: 20220705

REACTIONS (4)
  - Myelosuppression [Unknown]
  - Anaemia macrocytic [Unknown]
  - Drug ineffective [Unknown]
  - Drug intolerance [Not Recovered/Not Resolved]
